FAERS Safety Report 16360575 (Version 1)
Quarter: 2019Q2

REPORT INFORMATION
  Report Type: Spontaneous
  Country: DE (occurrence: DE)
  Receive Date: 20190528
  Receipt Date: 20190528
  Transmission Date: 20190711
  Serious: Yes (Hospitalization, Other)
  Sender: FDA-Public Use
  Company Number: DE-TEVA-2019-DE-1055024

PATIENT
  Age: 73 Year
  Sex: Male

DRUGS (2)
  1. TRAMADOL ABZ 100 MG RETARDKAPSELN [Concomitant]
     Dosage: 200 MILLIGRAM DAILY; MORNING AND EVENING
     Route: 048
     Dates: start: 2012
  2. DICLOFENAC [Suspect]
     Active Substance: DICLOFENAC
     Dosage: 2 DOSAGE FORMS DAILY; MORNING AND EVENING, RECEIVED AS CAPSULES OR TABLET
     Route: 048
     Dates: end: 201808

REACTIONS (3)
  - Renal function test abnormal [Recovered/Resolved]
  - Pulmonary embolism [Recovered/Resolved with Sequelae]
  - Liver function test abnormal [Recovered/Resolved]

NARRATIVE: CASE EVENT DATE: 201808
